FAERS Safety Report 8187516-X (Version None)
Quarter: 2012Q1

REPORT INFORMATION
  Report Type: 
  Country: None (occurrence: None)
  Receive Date: 20120302
  Receipt Date: 20120221
  Transmission Date: 20120608
  Serious: Yes (Hospitalization, Other)
  Sender: FDA-Public Use
  Company Number: EU-2011-10223

PATIENT
  Sex: Male
  Weight: 90 kg

DRUGS (42)
  1. ACC (ACETYLCYSTEINE) TABLET [Concomitant]
  2. VESDIL (RAMIPRIL) [Concomitant]
  3. LEVOTHYROXINE SODIUM [Concomitant]
  4. MORPHINE [Concomitant]
  5. RAMIPRIL [Concomitant]
  6. PANTOPRAZOLE [Concomitant]
  7. RAMIPRIL [Concomitant]
  8. AMLODIPIN (AMLODIPIN) [Concomitant]
  9. AMLODIPIN (AMLODIPIN) [Concomitant]
  10. IBUFLAM (IBUPROFEN) [Concomitant]
  11. AMPHO MORONAL (AMPHOTERICIN B) [Concomitant]
  12. KALINOR (POTASSIUM CHLORIDE) TABLET [Concomitant]
  13. ACETAMINOPHEN [Concomitant]
  14. METOPROLOL SUCCINATE [Concomitant]
  15. BERLINSULIN H NORMAL (INSULIN) [Concomitant]
  16. RAMIPRIL [Concomitant]
  17. COTRIM FORTE (SULFAMETHOXAZOLE, TRIMETHOPRIM) TABLET [Concomitant]
  18. ASPIRIN [Concomitant]
  19. PANTOPRAZOLE SODIUM [Concomitant]
  20. SAMSCA [Suspect]
     Indication: INAPPROPRIATE ANTIDIURETIC HORMONE SECRETION
     Dosage: 7.5 MG MILLIGRAM(S), DAILY DOSE, ORAL 15 MG MILLIGRAM(S), DAILY DOSE, ORAL
     Dates: start: 20110602, end: 20110602
  21. SAMSCA [Suspect]
     Indication: INAPPROPRIATE ANTIDIURETIC HORMONE SECRETION
     Dosage: 7.5 MG MILLIGRAM(S), DAILY DOSE, ORAL 15 MG MILLIGRAM(S), DAILY DOSE, ORAL
     Dates: start: 20110604, end: 20110614
  22. SAMSCA [Suspect]
     Indication: INAPPROPRIATE ANTIDIURETIC HORMONE SECRETION
     Dosage: 7.5 MG MILLIGRAM(S), DAILY DOSE, ORAL 15 MG MILLIGRAM(S), DAILY DOSE, ORAL
     Dates: start: 20110621, end: 20110707
  23. SAMSCA [Suspect]
     Indication: INAPPROPRIATE ANTIDIURETIC HORMONE SECRETION
     Dosage: 7.5 MG MILLIGRAM(S), DAILY DOSE, ORAL 15 MG MILLIGRAM(S), DAILY DOSE, ORAL
     Dates: start: 20110615, end: 20110621
  24. SAMSCA [Suspect]
     Indication: INAPPROPRIATE ANTIDIURETIC HORMONE SECRETION
     Dosage: 7.5 MG MILLIGRAM(S), DAILY DOSE, ORAL 15 MG MILLIGRAM(S), DAILY DOSE, ORAL
     Dates: start: 20110531
  25. SAMSCA [Suspect]
     Indication: INAPPROPRIATE ANTIDIURETIC HORMONE SECRETION
     Dosage: 7.5 MG MILLIGRAM(S), DAILY DOSE, ORAL 15 MG MILLIGRAM(S), DAILY DOSE, ORAL
     Dates: start: 20110601
  26. SALINE (SALINE) [Concomitant]
  27. CEFPODOXIM AL (CEFPODOXIME PROXETIL) [Concomitant]
  28. FOSAMAX [Concomitant]
  29. CLARITHROMYCIN [Concomitant]
  30. ZOPICLON (ZOPICLONE) [Concomitant]
  31. FRAGMIN [Concomitant]
  32. PIRITRAMIDE (PIRITRAMIDE) [Concomitant]
  33. ASPIRIN [Concomitant]
  34. METAMIZOLE (METAMIZOLE) [Concomitant]
  35. BERLINSULIN H BASAL (INSULIN HUMAN INJECTION, ISOPHANE) [Concomitant]
  36. ROCEPHIN [Concomitant]
  37. AMOXICILLIN [Concomitant]
  38. SULTANOL (SALBUTAMOL SULFATE) [Concomitant]
  39. ATROVENT [Concomitant]
  40. TARGIN (NALOXONE HYDROCHLORIDE, OXYCODONE HYDROCHLORIDE) [Concomitant]
  41. LACTULOSE [Concomitant]
  42. HEPARIN [Concomitant]

REACTIONS (6)
  - WRONG TECHNIQUE IN DRUG USAGE PROCESS [None]
  - INJECTION SITE INFECTION [None]
  - PANCYTOPENIA [None]
  - PNEUMONIA [None]
  - VERTIGO [None]
  - FALL [None]
